FAERS Safety Report 5238973-X (Version None)
Quarter: 2007Q1

REPORT INFORMATION
  Report Type: 
  Country: None (occurrence: None)
  Receive Date: 20061208
  Receipt Date: 20050609
  Transmission Date: 20070707
  Serious: Yes (Other)
  Sender: FDA-Public Use
  Company Number: 2005UW08917

PATIENT
  Age: 77 Year
  Sex: Female
  Weight: 60.327 kg

DRUGS (1)
  1. CRESTOR [Suspect]
     Indication: BLOOD CHOLESTEROL INCREASED
     Dates: start: 20040901

REACTIONS (6)
  - CATARACT [None]
  - CONSTIPATION [None]
  - HAIR DISORDER [None]
  - MELANOCYTIC NAEVUS [None]
  - SKIN ATROPHY [None]
  - VEIN DISORDER [None]
